FAERS Safety Report 10640358 (Version 1)
Quarter: 2014Q4

REPORT INFORMATION
  Report Type: Spontaneous
  Country: US (occurrence: None)
  Receive Date: 20141208
  Receipt Date: 20141208
  Transmission Date: 20150529
  Serious: Yes (Life-Threatening)
  Sender: FDA-Public Use
  Company Number: None

PATIENT
  Age: 54 Year
  Sex: Female
  Weight: 73.48 kg

DRUGS (1)
  1. VALSARTAN. [Suspect]
     Active Substance: VALSARTAN
     Indication: HYPERTENSION
     Dosage: 1, ONCE DAILY, TAKEN BY MOUTH
     Route: 048
     Dates: start: 20141128, end: 20141204

REACTIONS (6)
  - Economic problem [None]
  - Arthralgia [None]
  - Back pain [None]
  - Product substitution issue [None]
  - Feeling abnormal [None]
  - Blood pressure increased [None]

NARRATIVE: CASE EVENT DATE: 20141205
